FAERS Safety Report 8755902 (Version 2)
Quarter: 2012Q4

REPORT INFORMATION
  Report Type: 
  Country: IT (occurrence: IT)
  Receive Date: 20120828
  Receipt Date: 20120924
  Transmission Date: 20130627
  Serious: Yes (Hospitalization)
  Sender: FDA-Public Use
  Company Number: IT-TEVA-354965ISR

PATIENT
  Age: 40 Year
  Sex: Female

DRUGS (6)
  1. OLANZAPINE [Suspect]
     Dosage: 2.5 Milligram Daily;
     Route: 065
  2. ARIPIPRAZOLE [Suspect]
     Dosage: 20 Milligram Daily;
     Route: 065
     Dates: start: 2008
  3. CLOTIAPINE [Suspect]
     Route: 065
  4. ZUCLOPENTHIXOL [Suspect]
     Route: 030
  5. LAMOTRIGINE [Concomitant]
     Dosage: 25 Milligram Daily;
     Route: 065
     Dates: start: 2008
  6. LORAZEPAM [Concomitant]
     Route: 042

REACTIONS (2)
  - Neuroleptic malignant syndrome [Recovered/Resolved]
  - Catatonia [Recovered/Resolved]
